FAERS Safety Report 12259303 (Version 1)
Quarter: 2016Q2

REPORT INFORMATION
  Report Type: Spontaneous
  Country: US (occurrence: US)
  Receive Date: 20160412
  Receipt Date: 20160412
  Transmission Date: 20160815
  Serious: No
  Sender: FDA-Public Use
  Company Number: US-SA-2015SA076170

PATIENT
  Age: 21 Year
  Sex: Female

DRUGS (4)
  1. ALLEGRA [Suspect]
     Active Substance: FEXOFENADINE HYDROCHLORIDE
     Indication: SNEEZING
     Dosage: FORM: GELATIN CAPSULE
     Route: 065
     Dates: start: 20150529, end: 20150529
  2. ALLEGRA [Suspect]
     Active Substance: FEXOFENADINE HYDROCHLORIDE
     Indication: OROPHARYNGEAL PAIN
     Dosage: FORM: GELATIN CAPSULE
     Route: 065
     Dates: start: 20150529, end: 20150529
  3. ALLEGRA [Suspect]
     Active Substance: FEXOFENADINE HYDROCHLORIDE
     Indication: MULTIPLE ALLERGIES
     Dosage: FORM: GELATIN CAPSULE
     Route: 065
     Dates: start: 20150529, end: 20150529
  4. ALLEGRA [Suspect]
     Active Substance: FEXOFENADINE HYDROCHLORIDE
     Indication: RHINORRHOEA
     Dosage: FORM: GELATIN CAPSULE
     Route: 065
     Dates: start: 20150529, end: 20150529

REACTIONS (1)
  - Drug ineffective [Unknown]
